FAERS Safety Report 6640711-0 (Version None)
Quarter: 2010Q1

REPORT INFORMATION
  Report Type: 
  Country: None (occurrence: None)
  Receive Date: 20100318
  Receipt Date: 20100305
  Transmission Date: 20100710
  Serious: Yes (Other)
  Sender: FDA-Public Use
  Company Number: US-ELI_LILLY_AND_COMPANY-US201001002910

PATIENT
  Sex: Female
  Weight: 98.413 kg

DRUGS (9)
  1. BYETTA [Suspect]
     Indication: TYPE 2 DIABETES MELLITUS
     Dosage: 5 UG, 2/D
     Route: 058
     Dates: start: 20050901, end: 20080310
  2. AZITHROMYCIN [Concomitant]
     Dosage: 1 G, UNK
     Route: 048
  3. STARLIX [Concomitant]
     Dosage: 120 MG, 3/D
     Route: 048
  4. GLUCOPHAGE XR [Concomitant]
     Dosage: 1000 MG, 2/D
     Route: 048
  5. PALGIC [Concomitant]
     Dosage: 4 MG, DAILY (1/D)
     Route: 048
  6. DIOVAN [Concomitant]
     Dosage: 160 MG, EACH MORNING
     Route: 048
  7. OMEPRAZOLE MAGNESIUM [Concomitant]
     Dosage: 20 MG, DAILY (1/D)
     Route: 048
  8. XANAX [Concomitant]
     Dosage: 0.5 MG, 2/D
     Route: 048
  9. WELCHOL [Concomitant]
     Dosage: 1250 MG, EACH MORNING
     Route: 048

REACTIONS (3)
  - BACK PAIN [None]
  - DIARRHOEA [None]
  - PANCREATITIS ACUTE [None]
